FAERS Safety Report 11330483 (Version 1)
Quarter: 2015Q3

REPORT INFORMATION
  Report Type: Spontaneous
  Country: US (occurrence: US)
  Receive Date: 20150803
  Receipt Date: 20150803
  Transmission Date: 20151125
  Serious: No
  Sender: FDA-Public Use
  Company Number: US-BAYER-2015-391982

PATIENT
  Sex: Female
  Weight: 40.82 kg

DRUGS (1)
  1. CLARITIN [Suspect]
     Active Substance: LORATADINE
     Dosage: 0.5 DF, UNK
     Route: 048

REACTIONS (2)
  - Product use issue [None]
  - Somnolence [Unknown]
